FAERS Safety Report 16990165 (Version 1)
Quarter: 2019Q4

REPORT INFORMATION
  Report Type: Spontaneous
  Country: US (occurrence: US)
  Receive Date: 20190920
  Receipt Date: 20190920
  Transmission Date: 20200122
  Serious: Yes (Other)
  Sender: FDA-Public Use
  Company Number: None

PATIENT
  Age: 81 Year
  Sex: Female
  Weight: 58.51 kg

DRUGS (1)
  1. FULVESTRANT. [Suspect]
     Active Substance: FULVESTRANT
     Indication: BREAST CANCER METASTATIC
     Dosage: ?          OTHER FREQUENCY:9 MONTHS ;?
     Route: 030
     Dates: start: 20190814

REACTIONS (6)
  - Pulmonary congestion [None]
  - Cough [None]
  - Dizziness [None]
  - Dysphagia [None]
  - Condition aggravated [None]
  - Chest discomfort [None]

NARRATIVE: CASE EVENT DATE: 20190814
